FAERS Safety Report 26124691 (Version 1)
Quarter: 2025Q4

REPORT INFORMATION
  Report Type: Spontaneous
  Country: US (occurrence: US)
  Receive Date: 20251205
  Receipt Date: 20251205
  Transmission Date: 20260117
  Serious: Yes (Hospitalization)
  Sender: DR REDDYS
  Company Number: None

PATIENT
  Age: 17 Year
  Sex: Female

DRUGS (6)
  1. DOXORUBICIN [Suspect]
     Active Substance: DOXORUBICIN
     Indication: Hodgkin^s disease stage III
     Dosage: A COMPLETE RESPONSE AFTER TWO CYCLES
  2. PREDNISONE [Suspect]
     Active Substance: PREDNISONE
     Indication: Hodgkin^s disease stage III
     Dosage: A COMPLETE RESPONSE AFTER TWO CYCLES
  3. CYCLOPHOSPHAMIDE [Suspect]
     Active Substance: CYCLOPHOSPHAMIDE
     Indication: Hodgkin^s disease stage III
     Dosage: A COMPLETE RESPONSE AFTER TWO CYCLES
  4. BLEOMYCIN [Suspect]
     Active Substance: BLEOMYCIN SULFATE
     Indication: Hodgkin^s disease stage III
     Dosage: A COMPLETE RESPONSE AFTER TWO CYCLES
  5. VINCRISTINE [Suspect]
     Active Substance: VINCRISTINE
     Indication: Hodgkin^s disease stage III
     Dosage: A COMPLETE RESPONSE AFTER TWO CYCLES
  6. ETOPOSIDE [Suspect]
     Active Substance: ETOPOSIDE
     Indication: Hodgkin^s disease stage III
     Dosage: A COMPLETE RESPONSE AFTER TWO CYCLES

REACTIONS (2)
  - Mucoepidermoid carcinoma of salivary gland [Recovered/Resolved]
  - Second primary malignancy [Recovered/Resolved]
